FAERS Safety Report 16159318 (Version 3)
Quarter: 2019Q2

REPORT INFORMATION
  Report Type: Report from Study
  Country: ZA (occurrence: ZA)
  Receive Date: 20190404
  Receipt Date: 20190603
  Transmission Date: 20190711
  Serious: Yes (Life-Threatening, Hospitalization, Other)
  Sender: FDA-Public Use
  Company Number: ZA-SA-2019SA015500

PATIENT
  Age: 94 Year
  Sex: Male

DRUGS (9)
  1. INSULIN GLARGINE [Suspect]
     Active Substance: INSULIN GLARGINE
     Dosage: 12 U, HS, AT BEDTIME
     Route: 065
     Dates: start: 20181120
  2. RIDAQ [Concomitant]
     Active Substance: HYDROCHLOROTHIAZIDE
     Dosage: 12.5 U, QD (BEFORE BREAKFAST)
     Dates: start: 20181120
  3. NEXIAM [ESOMEPRAZOLE MAGNESIUM] [Concomitant]
     Active Substance: ESOMEPRAZOLE MAGNESIUM
     Dosage: 40 MG, QD (BEFORE BREAKFAST)
     Dates: start: 20181120
  4. GLUCOPHAGE [Concomitant]
     Active Substance: METFORMIN HYDROCHLORIDE
     Dosage: 1000 MG, QD (BEFORE BREAKFAST)
     Dates: start: 20181120
  5. SPIRACTIN [SPIRONOLACTONE] [Concomitant]
     Dosage: 25 MG, QD (BEFORE BREAKFAST)
     Dates: start: 20181120
  6. VILDAGLIPTIN [Concomitant]
     Active Substance: VILDAGLIPTIN
     Dosage: 50 MG, QD (BEFORE BREAKFAST)
     Dates: start: 20181120
  7. CILIFT [Concomitant]
     Active Substance: CITALOPRAM HYDROBROMIDE
     Dosage: 10 MG, QD (BEFORE SUPPER)
     Dates: start: 20181120
  8. ZOMEVEK [Concomitant]
     Active Substance: VALSARTAN
     Dosage: 80 MG, QD (BEFORE BREAKFAST)
     Dates: start: 20181120
  9. FORXIGA [Concomitant]
     Active Substance: DAPAGLIFLOZIN
     Dosage: 10 MG, QD (BEFORE BREAKFAST)
     Dates: start: 20181120

REACTIONS (14)
  - Neck injury [Not Recovered/Not Resolved]
  - Head injury [Not Recovered/Not Resolved]
  - Product dose omission [Unknown]
  - Loss of consciousness [Not Recovered/Not Resolved]
  - Blood glucose decreased [Not Recovered/Not Resolved]
  - Dehydration [Not Recovered/Not Resolved]
  - General physical health deterioration [Not Recovered/Not Resolved]
  - Fall [Not Recovered/Not Resolved]
  - Dysstasia [Not Recovered/Not Resolved]
  - Lethargy [Not Recovered/Not Resolved]
  - Decreased appetite [Not Recovered/Not Resolved]
  - Acute kidney injury [Unknown]
  - Diarrhoea [Not Recovered/Not Resolved]
  - Glycosylated haemoglobin increased [Unknown]

NARRATIVE: CASE EVENT DATE: 20190218
